FAERS Safety Report 5652822-7 (Version None)
Quarter: 2008Q1

REPORT INFORMATION
  Report Type: 
  Country: None (occurrence: None)
  Receive Date: 20080131
  Receipt Date: 20071021
  Transmission Date: 20080703
  Serious: No
  Sender: FDA-Public Use
  Company Number: US200710005337

PATIENT
  Age: 65 Year
  Sex: Female

DRUGS (2)
  1. BYETTA [Suspect]
     Indication: TYPE 2 DIABETES MELLITUS
     Dosage: 2/D, SUBCUTANEOUS
     Route: 058
     Dates: start: 20070301, end: 20070401
  2. INSULIN (INSULIN) [Concomitant]

REACTIONS (3)
  - DECREASED APPETITE [None]
  - ENERGY INCREASED [None]
  - NAUSEA [None]
